FAERS Safety Report 21722884 (Version 1)
Quarter: 2022Q4

REPORT INFORMATION
  Report Type: Spontaneous
  Country: US (occurrence: None)
  Receive Date: 20221212
  Receipt Date: 20221212
  Transmission Date: 20230113
  Serious: Yes (Other)
  Sender: FDA-Public Use
  Company Number: None

PATIENT
  Age: 56 Year
  Sex: Male

DRUGS (4)
  1. HUMIRA [Suspect]
     Active Substance: ADALIMUMAB
     Indication: Psoriasis
     Dosage: OTHER STRENGTH : 1 INJECTION;?OTHER QUANTITY : 1 INJECTION(S);?OTHER FREQUENCY : BI WEEKLY;?
     Route: 061
     Dates: start: 20191025, end: 20191112
  2. High Blood Pressure medicine [Concomitant]
  3. ADDERALL [Concomitant]
     Active Substance: AMPHETAMINE ASPARTATE\AMPHETAMINE SULFATE\DEXTROAMPHETAMINE SACCHARATE\DEXTROAMPHETAMINE SULFATE
  4. Herbal pain killers for psoriatic athritis [Concomitant]

REACTIONS (3)
  - Rash erythematous [None]
  - Skin burning sensation [None]
  - Systemic lupus erythematosus [None]

NARRATIVE: CASE EVENT DATE: 20191112
